FAERS Safety Report 15056737 (Version 1)
Quarter: 2018Q2

REPORT INFORMATION
  Report Type: Spontaneous
  Country: US (occurrence: US)
  Receive Date: 20180604
  Receipt Date: 20180604
  Transmission Date: 20180711
  Serious: No
  Sender: FDA-Public Use
  Company Number: None

PATIENT
  Age: 52 Year
  Sex: Female

DRUGS (3)
  1. REMICADE [Suspect]
     Active Substance: INFLIXIMAB
     Indication: BLOOD LACTATE DEHYDROGENASE INCREASED
     Dosage: 500MG EVERY 8 WEEKS SUBCUT
     Route: 058
     Dates: start: 20170718
  2. REMICADE [Suspect]
     Active Substance: INFLIXIMAB
     Indication: TRANSAMINASES INCREASED
     Dosage: 500MG EVERY 8 WEEKS SUBCUT
     Route: 058
     Dates: start: 20170718
  3. REMICADE [Suspect]
     Active Substance: INFLIXIMAB
     Indication: HEPATIC STEATOSIS

REACTIONS (1)
  - Attention deficit/hyperactivity disorder [None]

NARRATIVE: CASE EVENT DATE: 20180501
